FAERS Safety Report 13765173 (Version 1)
Quarter: 2017Q3

REPORT INFORMATION
  Report Type: Spontaneous
  Country: FR (occurrence: FR)
  Receive Date: 20170718
  Receipt Date: 20170718
  Transmission Date: 20171127
  Serious: Yes (Hospitalization)
  Sender: FDA-Public Use
  Company Number: FR-PFIZER INC-2222498

PATIENT
  Age: 55 Year
  Sex: Male

DRUGS (16)
  1. CARBOPLATIN. [Suspect]
     Active Substance: CARBOPLATIN
     Dosage: 375 MG, UNK
     Route: 041
     Dates: start: 20131002
  2. PACLITAXEL. [Suspect]
     Active Substance: PACLITAXEL
     Dosage: 90 MG, UNK
     Route: 041
     Dates: start: 20131009
  3. PACLITAXEL. [Suspect]
     Active Substance: PACLITAXEL
     Dosage: 180 MG, UNK
     Route: 041
     Dates: start: 20130904
  4. PACLITAXEL. [Suspect]
     Active Substance: PACLITAXEL
     Dosage: 90 MG, UNK
     Route: 041
     Dates: start: 20130925
  5. PACLITAXEL. [Suspect]
     Active Substance: PACLITAXEL
     Dosage: 90 MG, UNK
     Route: 041
     Dates: start: 20131016
  6. CARBOPLATIN. [Suspect]
     Active Substance: CARBOPLATIN
     Dosage: 340 MG, UNK
     Route: 041
     Dates: start: 20130925
  7. CARBOPLATIN. [Suspect]
     Active Substance: CARBOPLATIN
     Dosage: 840 MG, UNK
     Route: 041
     Dates: start: 20131030
  8. PACLITAXEL. [Suspect]
     Active Substance: PACLITAXEL
     Indication: SQUAMOUS CELL CARCINOMA OF LUNG
     Dosage: 180 MG, UNK
     Route: 041
     Dates: start: 20130828
  9. PACLITAXEL. [Suspect]
     Active Substance: PACLITAXEL
     Dosage: 90 MG, UNK
     Route: 041
     Dates: start: 20131002
  10. CARBOPLATIN. [Suspect]
     Active Substance: CARBOPLATIN
     Indication: SQUAMOUS CELL CARCINOMA OF LUNG
     Dosage: 840 MG, UNK
     Route: 041
     Dates: start: 20130828
  11. CARBOPLATIN. [Suspect]
     Active Substance: CARBOPLATIN
     Dosage: 395 MG, UNK
     Route: 041
     Dates: start: 20131009
  12. PACLITAXEL. [Suspect]
     Active Substance: PACLITAXEL
     Dosage: 90 MG, UNK
     Route: 041
     Dates: start: 20131030
  13. PACLITAXEL. [Suspect]
     Active Substance: PACLITAXEL
     Dosage: 90 MG, UNK
     Route: 041
     Dates: start: 20131106, end: 20131106
  14. CARBOPLATIN. [Suspect]
     Active Substance: CARBOPLATIN
     Dosage: 395 MG, UNK
     Route: 041
     Dates: start: 20131016
  15. CARBOPLATIN. [Suspect]
     Active Substance: CARBOPLATIN
     Dosage: 385 MG, UNK
     Route: 041
     Dates: start: 20131106, end: 20131106
  16. PACLITAXEL. [Suspect]
     Active Substance: PACLITAXEL
     Dosage: 180 MG, UNK
     Route: 041
     Dates: start: 20130911

REACTIONS (1)
  - Radiation pneumonitis [Recovered/Resolved]

NARRATIVE: CASE EVENT DATE: 20140127
